FAERS Safety Report 16000110 (Version 2)
Quarter: 2019Q1

REPORT INFORMATION
  Report Type: Spontaneous
  Country: US (occurrence: US)
  Receive Date: 20190225
  Receipt Date: 20190312
  Transmission Date: 20190418
  Serious: Yes (Disabling)
  Sender: FDA-Public Use
  Company Number: US-BAYER-2019-036196

PATIENT
  Age: 39 Year
  Sex: Female

DRUGS (3)
  1. GADAVIST [Suspect]
     Active Substance: GADOBUTROL
     Indication: NUCLEAR MAGNETIC RESONANCE IMAGING
     Dosage: UNK, ONCE
     Route: 042
     Dates: start: 2012
  2. GADAVIST [Suspect]
     Active Substance: GADOBUTROL
     Indication: NUCLEAR MAGNETIC RESONANCE IMAGING
     Dosage: UNK, ONCE
     Route: 042
     Dates: start: 20170421
  3. GADAVIST [Suspect]
     Active Substance: GADOBUTROL
     Indication: NUCLEAR MAGNETIC RESONANCE IMAGING
     Dosage: UNK, ONCE
     Route: 042
     Dates: start: 2011

REACTIONS (19)
  - Physical disability [None]
  - Visual impairment [None]
  - Photophobia [None]
  - Vomiting [None]
  - Asthenia [None]
  - Tinnitus [None]
  - Vomiting [None]
  - Blood heavy metal increased [None]
  - Feeling abnormal [None]
  - Extra dose administered [None]
  - Headache [None]
  - Burning sensation [None]
  - Nausea [None]
  - Vomiting [None]
  - Meningeal disorder [None]
  - Personality change [Recovering/Resolving]
  - Muscle twitching [None]
  - Balance disorder [None]
  - Abnormal behaviour [None]

NARRATIVE: CASE EVENT DATE: 2011
